FAERS Safety Report 8948228 (Version 1)
Quarter: 2012Q4

REPORT INFORMATION
  Report Type: Spontaneous
  Country: US (occurrence: None)
  Receive Date: 20121126
  Receipt Date: 20121126
  Transmission Date: 20130627
  Serious: Yes (Other)
  Sender: FDA-Public Use
  Company Number: 1493439

PATIENT
  Age: 47 Year
  Sex: Male

DRUGS (2)
  1. CARBOPLATIN [Suspect]
     Indication: LUNG ADENOCARCINOMA METASTATIC
  2. DOCETAXEL [Suspect]
     Indication: LUNG ADENOCARCINOMA METASTATIC

REACTIONS (5)
  - Pseudomembranous colitis [None]
  - Odynophagia [None]
  - Febrile neutropenia [None]
  - Mucosal inflammation [None]
  - White blood cell count decreased [None]
